FAERS Safety Report 19821288 (Version 1)
Quarter: 2021Q3

REPORT INFORMATION
  Report Type: Report from Study
  Country: PL (occurrence: PL)
  Receive Date: 20210913
  Receipt Date: 20210913
  Transmission Date: 20211014
  Serious: Yes (Hospitalization)
  Sender: FDA-Public Use
  Company Number: PL-ROCHE-2895367

PATIENT
  Age: 74 Year
  Sex: Female
  Weight: 47 kg

DRUGS (8)
  1. BLINDED BEVACIZUMAB [Suspect]
     Active Substance: BEVACIZUMAB
     Indication: BILE DUCT CANCER
     Dosage: START DATE OF MOST RECENT DOSE OF STUDY DRUG PRIOR TO AE 22?JUL?2021
     Route: 042
     Dates: start: 20210521
  2. ASPIRIN. [Concomitant]
     Active Substance: ASPIRIN
  3. ATEZOLIZUMAB. [Suspect]
     Active Substance: ATEZOLIZUMAB
     Indication: BILE DUCT CANCER
     Dosage: START DATE OF MOST RECENT DOSE OF STUDY DRUG PRIOR TO AE 22?JUL?2021
     Route: 042
     Dates: start: 20210521
  4. CISPLATIN. [Suspect]
     Active Substance: CISPLATIN
     Indication: BILE DUCT CANCER
     Dosage: START DATE OF MOST RECENT DOSE OF STUDY DRUG?PRIOR TO AE?08?JUL?2021
     Route: 042
     Dates: start: 20210521
  5. BETALOC [Concomitant]
     Active Substance: METOPROLOL
     Indication: HYPERTENSION
  6. DORETA [Concomitant]
     Active Substance: ACETAMINOPHEN\TRAMADOL HYDROCHLORIDE
     Indication: ABDOMINAL PAIN
     Dates: start: 20210514
  7. GEMCITABINE. [Suspect]
     Active Substance: GEMCITABINE
     Indication: BILE DUCT CANCER
     Dosage: START DATE OF MOST RECENT DOSE OF STUDY DRUG PRIOR TO AE 22?JUL?2021
     Route: 042
     Dates: start: 20210521
  8. PROKIT [Concomitant]
     Indication: ABDOMINAL PAIN
     Dates: start: 20210514

REACTIONS (1)
  - Cholestasis [Recovering/Resolving]

NARRATIVE: CASE EVENT DATE: 20210812
